FAERS Safety Report 7041608-7 (Version None)
Quarter: 2010Q4

REPORT INFORMATION
  Report Type: 
  Country: None (occurrence: None)
  Receive Date: 20101013
  Receipt Date: 20100415
  Transmission Date: 20110411
  Serious: No
  Sender: FDA-Public Use
  Company Number: US-ASTRAZENECA-2010SE16819

PATIENT
  Age: 660 Month
  Sex: Female

DRUGS (5)
  1. SYMBICORT [Suspect]
     Indication: ASTHMA
     Dosage: ONE PUFF
     Route: 055
     Dates: start: 20100301
  2. SYMBICORT [Suspect]
     Dosage: TWO PUFFS
     Route: 055
     Dates: start: 20100401
  3. HUMIRA [Concomitant]
     Indication: RHEUMATOID ARTHRITIS
  4. VENTOLIN [Concomitant]
     Indication: ASTHMA
  5. ALLERGY SHOTS [Concomitant]

REACTIONS (3)
  - CHEST DISCOMFORT [None]
  - DYSPNOEA EXERTIONAL [None]
  - INTENTIONAL DRUG MISUSE [None]
